FAERS Safety Report 5545331-7 (Version None)
Quarter: 2007Q4

REPORT INFORMATION
  Report Type: 
  Country: None (occurrence: None)
  Receive Date: 20071211
  Receipt Date: 20041201
  Transmission Date: 20080405
  Serious: Yes (Other)
  Sender: FDA-Public Use
  Company Number: IT-JNJFOC-20071100252

PATIENT
  Age: 43 Year
  Sex: Male
  Weight: 93 kg

DRUGS (3)
  1. HALOPERIDOL DECANOATE [Suspect]
     Indication: SCHIZOPHRENIA
     Dosage: UP TO 1 MG
     Route: 050
  2. ACE INHIBITORS [Concomitant]
     Route: 065
  3. CALCIUM ANTAGONISTS [Concomitant]
     Route: 065

REACTIONS (1)
  - WEIGHT INCREASED [None]
